FAERS Safety Report 25703681 (Version 2)
Quarter: 2025Q4

REPORT INFORMATION
  Report Type: Other
  Country: US (occurrence: US)
  Receive Date: 20250820
  Receipt Date: 20251121
  Transmission Date: 20260118
  Serious: Yes (Hospitalization, Other)
  Sender: VERASTEM
  Company Number: US-VERASTEM-250812US-AFCPK-00442

PATIENT

DRUGS (1)
  1. AVMAPKI FAKZYNJA CO-PACK [Suspect]
     Active Substance: AVUTOMETINIB POTASSIUM\DEFACTINIB HYDROCHLORIDE
     Indication: Ovarian cancer
     Dosage: TAKEN AS DIRECTED BY DOSING CARD
     Route: 048

REACTIONS (9)
  - Pyrexia [Unknown]
  - Splenectomy [Unknown]
  - Acne [Recovered/Resolved]
  - Oedema [Recovering/Resolving]
  - Lip ulceration [Not Recovered/Not Resolved]
  - Tongue ulceration [Not Recovered/Not Resolved]
  - Hepatic enzyme increased [Not Recovered/Not Resolved]
  - Dry eye [Unknown]
  - Dry skin [Not Recovered/Not Resolved]
